FAERS Safety Report 19910913 (Version 1)
Quarter: 2021Q4

REPORT INFORMATION
  Report Type: Spontaneous
  Country: FR (occurrence: FR)
  Receive Date: 20211004
  Receipt Date: 20211004
  Transmission Date: 20220303
  Serious: Yes (Hospitalization)
  Sender: FDA-Public Use
  Company Number: None

PATIENT
  Age: 86 Year
  Sex: Male
  Weight: 73 kg

DRUGS (2)
  1. COTELLIC [Suspect]
     Active Substance: COBIMETINIB
     Indication: Metastatic malignant melanoma
     Dosage: 3 TABLETS IN THE EVENING
     Route: 048
     Dates: start: 20210817, end: 20210826
  2. ZELBORAF [Suspect]
     Active Substance: VEMURAFENIB
     Indication: Metastatic malignant melanoma
     Dosage: 4 TABLETS MORNING AND EVENING
     Route: 048
     Dates: start: 20210817, end: 20210826

REACTIONS (8)
  - Lymphopenia [Not Recovered/Not Resolved]
  - Pyrexia [Recovered/Resolved]
  - Thrombocytopenia [Recovered/Resolved]
  - Rash [Recovering/Resolving]
  - Enanthema [Recovering/Resolving]
  - Photosensitivity reaction [Unknown]
  - Faeces soft [Unknown]
  - Conjunctivitis [Unknown]

NARRATIVE: CASE EVENT DATE: 20210819
